FAERS Safety Report 13332825 (Version 4)
Quarter: 2018Q3

REPORT INFORMATION
  Report Type: Spontaneous
  Country: US (occurrence: US)
  Receive Date: 20170314
  Receipt Date: 20180919
  Transmission Date: 20181010
  Serious: No
  Sender: FDA-Public Use
  Company Number: US-PFIZER INC-2017105986

PATIENT
  Age: 51 Year
  Sex: Female
  Weight: 68 kg

DRUGS (13)
  1. CYMBALTA [Concomitant]
     Active Substance: DULOXETINE HYDROCHLORIDE
     Indication: DIABETIC NEUROPATHY
  2. OMEPRAZOLE. [Concomitant]
     Active Substance: OMEPRAZOLE
     Indication: GASTROOESOPHAGEAL REFLUX DISEASE
     Dosage: 20 MG, 1X/DAY
  3. SIMVASTATIN. [Concomitant]
     Active Substance: SIMVASTATIN
     Indication: BLOOD CHOLESTEROL ABNORMAL
     Dosage: 10 MG, 1X/DAY
  4. LYRICA [Suspect]
     Active Substance: PREGABALIN
     Indication: DIABETIC NEUROPATHY
     Dosage: 100 MG, 3X/DAY(1 CAPSULE THREE TIMES A DAY)
     Route: 048
  5. CYMBALTA [Concomitant]
     Active Substance: DULOXETINE HYDROCHLORIDE
     Indication: DEPRESSION
     Dosage: 30 MG, 3X/DAY
  6. LYRICA [Suspect]
     Active Substance: PREGABALIN
     Indication: TYPE 1 DIABETES MELLITUS
  7. ROPINIROLE. [Concomitant]
     Active Substance: ROPINIROLE
     Indication: RESTLESS LEGS SYNDROME
     Dosage: 2 MG, DAILY, 1.5 MG AT NIGHT AND 0.5MG IN THE MORNING
  8. ROPINIROLE. [Concomitant]
     Active Substance: ROPINIROLE
     Indication: DYSKINESIA
  9. LYRICA [Suspect]
     Active Substance: PREGABALIN
     Indication: TYPE 2 DIABETES MELLITUS
  10. CYMBALTA [Concomitant]
     Active Substance: DULOXETINE HYDROCHLORIDE
     Indication: FIBROMYALGIA
  11. IRBESARTAN. [Concomitant]
     Active Substance: IRBESARTAN
     Indication: RENAL DISORDER
     Dosage: 300 MG, 1X/DAY
  12. LYRICA [Suspect]
     Active Substance: PREGABALIN
     Indication: FIBROMYALGIA
  13. HUMALOG [Concomitant]
     Active Substance: INSULIN LISPRO
     Indication: BLOOD INSULIN ABNORMAL

REACTIONS (8)
  - Affective disorder [Unknown]
  - Weight increased [Unknown]
  - Drug effect incomplete [Not Recovered/Not Resolved]
  - Memory impairment [Unknown]
  - Pain [Unknown]
  - Feeling abnormal [Unknown]
  - Cognitive disorder [Unknown]
  - Aphasia [Unknown]
